FAERS Safety Report 4830358-0 (Version None)
Quarter: 2005Q4

REPORT INFORMATION
  Report Type: 
  Country: None (occurrence: None)
  Receive Date: 20051117
  Receipt Date: 20050428
  Transmission Date: 20060501
  Serious: Yes (Other)
  Sender: FDA-Public Use
  Company Number: PHEH2005US04971

PATIENT
  Age: 64 Year
  Sex: Female

DRUGS (15)
  1. THALOMID [Concomitant]
     Indication: MULTIPLE MYELOMA
     Dosage: 200 MG, QD
  2. DECADRON [Concomitant]
     Dosage: 40 MG, QW
  3. FOSAMAX ONCE WEEKLY [Concomitant]
     Indication: OSTEOPOROSIS
     Dosage: 70 MG, QW
  4. ZOMETA [Suspect]
     Indication: MULTIPLE MYELOMA
     Dosage: 4 MG EVERY MONTH
     Route: 042
     Dates: end: 20050331
  5. SYNTHROID [Concomitant]
     Dosage: 0.1 MG, QD
  6. VALTREX [Concomitant]
     Dosage: 500 MG, QD
  7. BACTRIM DS [Concomitant]
     Dosage: 2 DAYS/WEEK
  8. LASIX [Concomitant]
     Dosage: 40 MG, BID
  9. POTASSIUM CHLORIDE [Concomitant]
     Dosage: 10 MEQ, 14 TABS DAILY
  10. ALDACTONE [Concomitant]
     Dosage: 25 MG, BID
  11. PRILOSEC [Concomitant]
     Dosage: 20 MG, QD
  12. GLUCOTROL [Concomitant]
     Dosage: 10 MG, 1-2 DAILY
  13. ZAROXOLYN [Concomitant]
     Dosage: 100 MG, QD
  14. ALLOPURINOL [Concomitant]
     Dosage: 300 MG, QD
  15. COUMADIN [Concomitant]
     Dosage: ADJUST TO INR

REACTIONS (5)
  - BONE DISORDER [None]
  - DENTAL TREATMENT [None]
  - MASTICATION DISORDER [None]
  - OSTEONECROSIS [None]
  - PAIN IN JAW [None]
